FAERS Safety Report 5158906-4 (Version None)
Quarter: 2006Q4

REPORT INFORMATION
  Report Type: 
  Country: None (occurrence: None)
  Receive Date: 20061117
  Receipt Date: 20061114
  Transmission Date: 20070319
  Serious: Yes (Hospitalization, Other)
  Sender: FDA-Public Use
  Company Number: US-2006-028765

PATIENT
  Age: 55 Year
  Sex: Female
  Weight: 63 kg

DRUGS (5)
  1. CLIMARA [Suspect]
     Indication: HORMONE REPLACEMENT THERAPY
     Dosage: 0.025 MG/D, 1X/WEEK, TRANSDERMAL; SEE IMAGE
     Route: 062
     Dates: start: 19960101, end: 20010101
  2. CLIMARA [Suspect]
     Dosage: 0.037 MG/D, 1X/WEEK, TRANSDERMAL
     Route: 062
     Dates: start: 20020101
  3. LEVOTHYROXINE SODIUM [Concomitant]
  4. ATENOLOL [Concomitant]
  5. LIPITOR [Concomitant]

REACTIONS (4)
  - DETACHED RETINA REPAIR [None]
  - HOT FLUSH [None]
  - HYPERHIDROSIS [None]
  - MIDDLE INSOMNIA [None]
